FAERS Safety Report 17889284 (Version 1)
Quarter: 2020Q2

REPORT INFORMATION
  Report Type: Spontaneous
  Country: US (occurrence: US)
  Receive Date: 20200612
  Receipt Date: 20200612
  Transmission Date: 20200714
  Serious: No
  Sender: FDA-Public Use
  Company Number: US-HIKMA PHARMACEUTICALS USA INC.-US-H14001-19-04599

PATIENT
  Sex: Male
  Weight: 86.17 kg

DRUGS (1)
  1. FLUTICASONE PROPIONATE. [Suspect]
     Active Substance: FLUTICASONE PROPIONATE
     Indication: HEADACHE
     Dosage: IN EACH NOSTRIL
     Route: 045
     Dates: start: 2017, end: 20190801

REACTIONS (3)
  - Blood pressure increased [Unknown]
  - Off label use [Unknown]
  - Incorrect product administration duration [Unknown]
